FAERS Safety Report 23899238 (Version 2)
Quarter: 2024Q2

REPORT INFORMATION
  Report Type: Spontaneous
  Country: NL (occurrence: NL)
  Receive Date: 20240526
  Receipt Date: 20240613
  Transmission Date: 20240716
  Serious: Yes (Death, Other)
  Sender: FDA-Public Use
  Company Number: NL-ABBVIE-5724562

PATIENT
  Age: 66 Year
  Sex: Female

DRUGS (9)
  1. ROPINIROLE [Suspect]
     Active Substance: ROPINIROLE
     Indication: Parkinson^s disease
     Dosage: UNK
     Route: 048
     Dates: start: 20240420
  2. CARBIDOPA\LEVODOPA [Suspect]
     Active Substance: CARBIDOPA\LEVODOPA
     Indication: Parkinson^s disease
     Dosage: LD: 1.50 ML, BIR: 0.80 ML/H, LIR: 0.48 ML/H, ED: 0.2 ML, TLD: 16.64 REMAINS AT 24 HOURS
     Route: 058
     Dates: start: 20240417, end: 20240417
  3. CARBIDOPA\LEVODOPA [Suspect]
     Active Substance: CARBIDOPA\LEVODOPA
     Dosage: LD: 1.50 ML, BIR: 0.83 ML/H, LIR: 0.48 ML/H, ED: 0.2 ML,; REMAINS AT 24 HOURS
     Route: 058
     Dates: start: 20240417, end: 20240419
  4. CARBIDOPA\LEVODOPA [Suspect]
     Active Substance: CARBIDOPA\LEVODOPA
     Dosage: LD: 1.50 ML, BIR: 0.86 ML/H, LIR: 0.51 ML/H, TLD: 17.84ML, ED: 0.20 ML, REMAINS AT 24 HOURS
     Route: 058
     Dates: start: 20240419, end: 20240426
  5. CARBIDOPA\LEVODOPA [Suspect]
     Active Substance: CARBIDOPA\LEVODOPA
     Dosage: LD: 1.50 ML, BIR: 0.78 ML/H, LIR: 0.45 ML/H, ED: 0.2 ML, TLD: 16.08, REMAINS AT 24 HOURS
     Route: 058
     Dates: start: 20240416, end: 20240417
  6. CARBIDOPA\LEVODOPA [Suspect]
     Active Substance: CARBIDOPA\LEVODOPA
     Dosage: LD: 1.50 ML, BIR: 0.96 ML/H, LIR: 0.56 ML/H, TLD: 19.84 ML, ED: 0.30 ML; REMAINS AT 24 HOURS
     Route: 058
     Dates: start: 20240430
  7. CARBIDOPA\LEVODOPA [Suspect]
     Active Substance: CARBIDOPA\LEVODOPA
     Dosage: LD: 1.50 ML, BIR: 0.92 ML/H, LIR: 0.56 ML/H, TLD: 19.20ML, ED: 0.30 ML; REMAINS AT 24 HOURS
     Route: 058
     Dates: start: 20240426, end: 20240430
  8. CARBIDOPA\LEVODOPA [Suspect]
     Active Substance: CARBIDOPA\LEVODOPA
     Dosage: REMAINS AT 24 HOURS
     Route: 058
     Dates: start: 20240415
  9. BENSERAZIDE HYDROCHLORIDE\LEVODOPA [Concomitant]
     Active Substance: BENSERAZIDE HYDROCHLORIDE\LEVODOPA
     Indication: On and off phenomenon
     Dosage: UNK
     Route: 065

REACTIONS (17)
  - Cerebral haemorrhage [Fatal]
  - Feeling abnormal [Not Recovered/Not Resolved]
  - Hyporesponsive to stimuli [Not Recovered/Not Resolved]
  - Condition aggravated [Not Recovered/Not Resolved]
  - Unevaluable event [Not Recovered/Not Resolved]
  - Infusion site reaction [Recovered/Resolved]
  - Speech disorder [Recovering/Resolving]
  - On and off phenomenon [Not Recovered/Not Resolved]
  - Muscle rigidity [Not Recovered/Not Resolved]
  - Diarrhoea [Not Recovered/Not Resolved]
  - Tremor [Not Recovered/Not Resolved]
  - Facial paresis [Unknown]
  - Musculoskeletal stiffness [Recovering/Resolving]
  - Loss of personal independence in daily activities [Recovered/Resolved]
  - Therapeutic product effect incomplete [Not Recovered/Not Resolved]
  - Wrong technique in device usage process [Unknown]
  - Drug ineffective [Not Recovered/Not Resolved]

NARRATIVE: CASE EVENT DATE: 20240401
